FAERS Safety Report 10343243 (Version 2)
Quarter: 2015Q1

REPORT INFORMATION
  Report Type: Spontaneous
  Country: MX (occurrence: MX)
  Receive Date: 20140725
  Receipt Date: 20150212
  Transmission Date: 20150720
  Serious: Yes (Death, Other)
  Sender: FDA-Public Use
  Company Number: PHHY2014MX091553

PATIENT
  Age: 87 Year
  Sex: Female

DRUGS (2)
  1. NORFENON [Concomitant]
     Indication: TACHYCARDIA
     Route: 065
  2. EXFORGE [Suspect]
     Active Substance: AMLODIPINE BESYLATE\VALSARTAN
     Indication: HYPERTENSION
     Dosage: 1 DF (160/10 MG), QD
     Route: 065

REACTIONS (5)
  - Blood sodium abnormal [Unknown]
  - Blood potassium abnormal [Unknown]
  - Thyroid neoplasm [Recovering/Resolving]
  - Pneumonia [Fatal]
  - Diabetes mellitus [Unknown]

NARRATIVE: CASE EVENT DATE: 20141202
